FAERS Safety Report 4544234-4 (Version None)
Quarter: 2004Q4

REPORT INFORMATION
  Report Type: 
  Country: None (occurrence: None)
  Receive Date: 20041230
  Receipt Date: 20041217
  Transmission Date: 20050328
  Serious: Yes (Life-Threatening)
  Sender: FDA-Public Use
  Company Number: 2004116587

PATIENT
  Age: 87 Year
  Sex: Male
  Weight: 71.6683 kg

DRUGS (7)
  1. CELEBREX [Suspect]
     Indication: BACK PAIN
     Dosage: (100 MG) ORAL
     Route: 048
     Dates: start: 20041215, end: 20041215
  2. ROFECOXIB [Suspect]
     Indication: ILL-DEFINED DISORDER
     Dosage: (25 MG), ORAL
     Route: 048
     Dates: start: 20041201, end: 20041201
  3. ATENOLOL [Concomitant]
  4. BELLASPON RETARD (BELLADONNA ALKALOIDS, ERGOTAMINE TARTRATE, PHENOBARB [Concomitant]
  5. PRAZOSIN GITS [Concomitant]
  6. DYAZIDE [Concomitant]
  7. ASPIRIN [Concomitant]

REACTIONS (4)
  - ARRHYTHMIA [None]
  - BLOOD PRESSURE INCREASED [None]
  - CONDITION AGGRAVATED [None]
  - SELF-MEDICATION [None]
